FAERS Safety Report 5114517-8 (Version None)
Quarter: 2006Q3

REPORT INFORMATION
  Report Type: 
  Country: None (occurrence: None)
  Receive Date: 20060921
  Receipt Date: 20060901
  Transmission Date: 20061208
  Serious: Yes (Hospitalization, Disabling, Other)
  Sender: FDA-Public Use
  Company Number: 06-MIT00007

PATIENT
  Sex: Male

DRUGS (1)
  1. MITOMYCIN [Suspect]
     Dosage: BLADDER INSTALLATION

REACTIONS (6)
  - BLADDER DISORDER [None]
  - BLADDER PERFORATION [None]
  - INJURY [None]
  - PROSTATIC DISORDER [None]
  - RENAL IMPAIRMENT [None]
  - SEXUAL DYSFUNCTION [None]
